FAERS Safety Report 5656019-6 (Version None)
Quarter: 2008Q1

REPORT INFORMATION
  Report Type: 
  Country: None (occurrence: None)
  Receive Date: 20080307
  Receipt Date: 20080226
  Transmission Date: 20080703
  Serious: Yes (Death, Other)
  Sender: FDA-Public Use
  Company Number: GB-PFIZER INC-2008018772

PATIENT
  Sex: Female
  Weight: 86 kg

DRUGS (14)
  1. PREDNISOLONE [Suspect]
     Dosage: DAILY DOSE:10MG
     Route: 048
  2. ETANERCEPT [Suspect]
     Indication: RHEUMATOID ARTHRITIS
     Dosage: DAILY DOSE:25MG
     Route: 058
     Dates: start: 20031107, end: 20070412
  3. ALENDRONATE SODIUM [Concomitant]
     Dosage: DAILY DOSE:70MG
     Route: 058
  4. DIGOXIN [Concomitant]
  5. DICLOFENAC SODIUM [Concomitant]
  6. ASPIRIN [Concomitant]
  7. AMITRIPTYLINE HCL [Concomitant]
  8. CALCIUM CARBONATE/COLECALCIFEROL [Concomitant]
  9. ACETAMINOPHEN [Concomitant]
  10. CITALOPRAM HYDROBROMIDE [Concomitant]
  11. FUROSEMIDE [Concomitant]
  12. RABEPRAZOLE SODIUM [Concomitant]
  13. METHOTREXATE [Concomitant]
  14. LANSOPRAZOLE [Concomitant]

REACTIONS (3)
  - CHOLANGITIS [None]
  - CHOLELITHIASIS [None]
  - STREPTOCOCCAL SEPSIS [None]
